FAERS Safety Report 5056505-6 (Version None)
Quarter: 2006Q3

REPORT INFORMATION
  Report Type: 
  Country: None (occurrence: None)
  Receive Date: 20060714
  Receipt Date: 20060629
  Transmission Date: 20061208
  Serious: Yes (Death, Hospitalization)
  Sender: FDA-Public Use
  Company Number: COT_0627_2006

PATIENT
  Age: 52 Year
  Sex: Female
  Weight: 59.8748 kg

DRUGS (16)
  1. VENTAVIS [Suspect]
     Indication: PULMONARY HYPERTENSION
     Dosage: 5 MCG 4 TIMES A DAY IH
     Route: 055
     Dates: start: 20021202
  2. COUMADIN [Suspect]
     Dosage: DF
  3. SYNTHROID [Concomitant]
  4. PROTONIX [Concomitant]
  5. DIGOXIN [Concomitant]
  6. ALLOPURINOL [Concomitant]
  7. HYDRAZALINE [Concomitant]
  8. FENTANYL [Concomitant]
  9. CELEXA [Concomitant]
  10. TRAZODONE HCL [Concomitant]
  11. EPOGEN [Concomitant]
  12. IRON [Concomitant]
  13. ALBUTEROL SPIROS [Concomitant]
  14. SILDENAFIL CITRATE [Concomitant]
  15. FOLIC ACID [Concomitant]
  16. RENAGEL [Concomitant]

REACTIONS (10)
  - ARRHYTHMIA [None]
  - CARDIAC ARREST [None]
  - CARDIAC FAILURE [None]
  - FALL [None]
  - HYPOTENSION [None]
  - LETHARGY [None]
  - RENAL FAILURE [None]
  - RESPIRATORY FAILURE [None]
  - SUBARACHNOID HAEMORRHAGE [None]
  - VENTRICULAR TACHYCARDIA [None]
